FAERS Safety Report 8858550 (Version 2)
Quarter: 2012Q4

REPORT INFORMATION
  Report Type: 
  Country: KR (occurrence: KR)
  Receive Date: 20121024
  Receipt Date: 20121206
  Transmission Date: 20130627
  Serious: Yes (Hospitalization, Other)
  Sender: FDA-Public Use
  Company Number: KR-PFIZER INC-2012262074

PATIENT
  Age: 26 Year
  Sex: Female

DRUGS (8)
  1. RIFAMPIN [Suspect]
     Indication: PULMONARY TUBERCULOSIS
     Dosage: 150 mg, UNK
  2. RIFAMPIN [Suspect]
     Dosage: 450 mg, UNK
  3. ETHAMBUTOL [Suspect]
     Indication: PULMONARY TUBERCULOSIS
     Dosage: 400 mg, UNK
  4. METHYLPREDNISOLONE [Concomitant]
     Indication: FEVER
     Dosage: 120 mg, 1x/day
  5. METHYLPREDNISOLONE [Concomitant]
     Indication: RASH
  6. NORMAL HUMAN IMMUNOGLOBULIN [Concomitant]
     Indication: FEVER
     Dosage: UNK
  7. NORMAL HUMAN IMMUNOGLOBULIN [Concomitant]
     Indication: RASH
  8. LEVOFLOXACIN [Concomitant]
     Indication: PULMONARY TUBERCULOSIS
     Dosage: UNK

REACTIONS (2)
  - Drug reaction with eosinophilia and systemic symptoms [Recovered/Resolved]
  - Hepatitis [Recovered/Resolved]
